FAERS Safety Report 8520573-7 (Version None)
Quarter: 2012Q3

REPORT INFORMATION
  Report Type: 
  Country: None (occurrence: None)
  Receive Date: 20120719
  Receipt Date: 20120713
  Transmission Date: 20120928
  Serious: Yes (Other)
  Sender: FDA-Public Use
  Company Number: US-PFIZER INC-2012170541

PATIENT
  Age: 84 Year

DRUGS (2)
  1. CLONAZEPAM [Suspect]
     Dosage: UNK
  2. LIPITOR [Suspect]
     Dosage: UNK

REACTIONS (3)
  - TOURETTE'S DISORDER [None]
  - MUSCLE SPASMS [None]
  - FALL [None]
